FAERS Safety Report 22365051 (Version 2)
Quarter: 2023Q2

REPORT INFORMATION
  Report Type: Spontaneous
  Country: GB (occurrence: GB)
  Receive Date: 20230525
  Receipt Date: 20230605
  Transmission Date: 20230722
  Serious: Yes (Death, Other)
  Sender: FDA-Public Use
  Company Number: GB-MHRA-MED-202305130447552460-LTNSZ

PATIENT
  Age: 55 Year
  Sex: Male
  Weight: 75 kg

DRUGS (3)
  1. ESCITALOPRAM [Suspect]
     Active Substance: ESCITALOPRAM OXALATE
     Indication: Anxiety
     Dosage: PT COMMENCED ESCITALOPRAM MID TO LATE FEB 10MG DAILY. DOSE INCREASE TO 20MG ABOUT 10TH APRIL
     Route: 065
     Dates: start: 20230228
  2. ESCITALOPRAM [Suspect]
     Active Substance: ESCITALOPRAM OXALATE
     Route: 065
     Dates: start: 20230410
  3. PROPRANOLOL [Concomitant]
     Active Substance: PROPRANOLOL HYDROCHLORIDE
     Indication: Anxiety

REACTIONS (2)
  - Completed suicide [Fatal]
  - Gastrointestinal disorder [Unknown]

NARRATIVE: CASE EVENT DATE: 20230421
